FAERS Safety Report 4870285-6 (Version None)
Quarter: 2005Q4

REPORT INFORMATION
  Report Type: 
  Country: None (occurrence: None)
  Receive Date: 20051228
  Receipt Date: 20051206
  Transmission Date: 20060501
  Serious: Yes (Hospitalization)
  Sender: FDA-Public Use
  Company Number: FR200512000795

PATIENT
  Age: 50 Year
  Sex: Male
  Weight: 82 kg

DRUGS (10)
  1. LISPRO 50LIS50NPL (LISPRO 50% LISPRO, 50% NPL) CARTRIDGE [Suspect]
     Dosage: SEE IMAGE
     Route: 058
     Dates: start: 20030101, end: 20030601
  2. LISPRO 50LIS50NPL (LISPRO 50% LISPRO, 50% NPL) CARTRIDGE [Suspect]
     Dosage: SEE IMAGE
     Route: 058
     Dates: start: 20030101, end: 20030601
  3. HUMALOG MIX 75/25 [Suspect]
     Indication: DIABETES MELLITUS INSULIN-DEPENDENT
     Dosage: 20 U, DAILY (1/D), SUBCUTANEOUS
     Route: 058
     Dates: end: 20030701
  4. HUMAN INSULIN (RDNA ORIGIN) NPH (HUMAN INSULIN (RDNA ORIGIN) NPH) PEN, [Suspect]
     Indication: DIABETES MELLITUS INSULIN-DEPENDENT
     Dosage: SUBCUTANEOUS
     Route: 058
     Dates: start: 20030101, end: 20030601
  5. ANTIHISTAMINES [Concomitant]
  6. PLAVIX [Concomitant]
  7. ASPEGIC 1000 [Concomitant]
  8. VERAPAMIL [Concomitant]
  9. HUMULIN N PEN (HUMULIN N PEN), PEN, DISPOSABLE [Concomitant]
  10. HUMALOG 50NPL / 50L PEN (HUMALOG 50NPL / 50L PEN) PEN, DISPOSABLE [Concomitant]

REACTIONS (7)
  - ANAPHYLACTIC REACTION [None]
  - ANGIONEUROTIC OEDEMA [None]
  - DIABETES MELLITUS INADEQUATE CONTROL [None]
  - INJECTION SITE ERYTHEMA [None]
  - INJECTION SITE IRRITATION [None]
  - INJECTION SITE PRURITUS [None]
  - URTICARIA GENERALISED [None]
